FAERS Safety Report 25339823 (Version 1)
Quarter: 2025Q2

REPORT INFORMATION
  Report Type: Spontaneous
  Country: US (occurrence: US)
  Receive Date: 20250521
  Receipt Date: 20250521
  Transmission Date: 20250717
  Serious: No
  Sender: DR REDDYS
  Company Number: US-DRL-USA-USA/2025/05/006938

PATIENT
  Age: 67 Year
  Sex: Female

DRUGS (1)
  1. CLONIDINE TRANSDERMAL SYSTEM USP, 0.1 MG/DAY [Suspect]
     Active Substance: CLONIDINE
     Indication: Hypertension
     Dosage: SERIAL NUMBER: 6MKMJE3TKM2Q.
     Route: 062
     Dates: start: 20250418

REACTIONS (3)
  - Product dose omission issue [Unknown]
  - Drug ineffective [Unknown]
  - Product physical issue [Unknown]

NARRATIVE: CASE EVENT DATE: 20250427
